FAERS Safety Report 7378632-0 (Version None)
Quarter: 2011Q1

REPORT INFORMATION
  Report Type: 
  Country: None (occurrence: None)
  Receive Date: 20110317
  Receipt Date: 20110307
  Transmission Date: 20110831
  Serious: Yes (Death)
  Sender: FDA-Public Use
  Company Number: 026594

PATIENT
  Age: 73 Year
  Sex: Male

DRUGS (3)
  1. NEUPRO [Suspect]
     Dosage: 4 MG 1X/24 HOURS
  2. RIVASTIGMINE [Concomitant]
  3. MIDAZOLAM [Concomitant]

REACTIONS (1)
  - DEATH [None]
